FAERS Safety Report 11809828 (Version 4)
Quarter: 2016Q3

REPORT INFORMATION
  Report Type: Report from Study
  Country: CA (occurrence: CA)
  Receive Date: 20151208
  Receipt Date: 20160907
  Transmission Date: 20161109
  Serious: Yes (Other)
  Sender: FDA-Public Use
  Company Number: CA-ROCHE-1314875

PATIENT
  Age: 79 Year
  Sex: Female
  Weight: 69.92 kg

DRUGS (11)
  1. ACETAMINOPHEN. [Concomitant]
     Active Substance: ACETAMINOPHEN
     Route: 048
     Dates: start: 20140813
  2. RITUXAN [Suspect]
     Active Substance: RITUXIMAB
     Indication: RHEUMATOID ARTHRITIS
     Dosage: HER PREVIOUS RITUXIMAB DOSE WAS ON 16/SEP/2014.
     Route: 042
     Dates: start: 20130730
  3. HYDRAZIDE (CANADA) [Concomitant]
  4. ACETAMINOPHEN. [Concomitant]
     Active Substance: ACETAMINOPHEN
     Indication: PREMEDICATION
     Route: 048
     Dates: start: 20130730, end: 20130730
  5. METHOTREXATE. [Concomitant]
     Active Substance: METHOTREXATE
  6. METHYLPREDNISOLONE. [Concomitant]
     Active Substance: METHYLPREDNISOLONE
     Indication: PREMEDICATION
     Route: 042
     Dates: start: 20130730
  7. LEUCOVORIN. [Concomitant]
     Active Substance: LEUCOVORIN
  8. ACETYLSALICYLIC ACID [Concomitant]
     Active Substance: ASPIRIN
  9. DIPHENHYDRAMINE HCL [Concomitant]
     Active Substance: DIPHENHYDRAMINE HYDROCHLORIDE
     Indication: PREMEDICATION
     Route: 048
     Dates: start: 20130730
  10. ROSUVASTATIN TEVA [Concomitant]
     Active Substance: ROSUVASTATIN
  11. AMLODIPINE [Concomitant]
     Active Substance: AMLODIPINE BESYLATE

REACTIONS (15)
  - Cartilage injury [Recovering/Resolving]
  - Weight increased [Unknown]
  - Wrist fracture [Unknown]
  - Influenza [Recovered/Resolved]
  - Arthralgia [Not Recovered/Not Resolved]
  - Cartilage injury [Recovering/Resolving]
  - Injury [Recovering/Resolving]
  - Drug dose omission [Unknown]
  - Abdominal distension [Not Recovered/Not Resolved]
  - Joint stiffness [Not Recovered/Not Resolved]
  - Joint swelling [Not Recovered/Not Resolved]
  - Rheumatoid arthritis [Not Recovered/Not Resolved]
  - Abdominal pain lower [Not Recovered/Not Resolved]
  - Influenza like illness [Recovered/Resolved]
  - Ligament rupture [Recovering/Resolving]

NARRATIVE: CASE EVENT DATE: 20130815
